FAERS Safety Report 8023908-7 (Version None)
Quarter: 2012Q1

REPORT INFORMATION
  Report Type: 
  Country: None (occurrence: None)
  Receive Date: 20120103
  Receipt Date: 20120103
  Transmission Date: 20120608
  Serious: Yes (Hospitalization, Disabling)
  Sender: FDA-Public Use
  Company Number: None

PATIENT
  Sex: Female
  Weight: 59.8748 kg

DRUGS (1)
  1. ARZERRA [Suspect]
     Indication: CHRONIC LYMPHOCYTIC LEUKAEMIA
     Dosage: 300 MG 1 IV
     Route: 042
     Dates: start: 20110511

REACTIONS (14)
  - PNEUMONIA [None]
  - ALLERGY TO ANIMAL [None]
  - SPEECH DISORDER [None]
  - ASTHENIA [None]
  - LUNG DISORDER [None]
  - WEIGHT DECREASED [None]
  - PRODUCTIVE COUGH [None]
  - DYSPNOEA [None]
  - NO THERAPEUTIC RESPONSE [None]
  - FATIGUE [None]
  - WHEEZING [None]
  - SINUS DISORDER [None]
  - ANOSMIA [None]
  - ACTIVITIES OF DAILY LIVING IMPAIRED [None]
